FAERS Safety Report 10692736 (Version 1)
Quarter: 2015Q1

REPORT INFORMATION
  Report Type: Spontaneous
  Country: US (occurrence: None)
  Receive Date: 20150105
  Receipt Date: 20150105
  Transmission Date: 20150720
  Serious: No
  Sender: FDA-Public Use
  Company Number: None

PATIENT
  Age: 40 Year
  Sex: Female
  Weight: 106.6 kg

DRUGS (1)
  1. SOLODYN [Suspect]
     Active Substance: MINOCYCLINE HYDROCHLORIDE
     Indication: ACNE
     Dosage: 1, ONCE DAILY, TAKEN BY MOUTH
     Route: 048
     Dates: start: 20131231, end: 20131231

REACTIONS (7)
  - Erythema [None]
  - Blood pressure increased [None]
  - Hyperhidrosis [None]
  - Loss of consciousness [None]
  - Pruritus [None]
  - Heart rate increased [None]
  - Urticaria [None]

NARRATIVE: CASE EVENT DATE: 20131231
